FAERS Safety Report 7006896-1 (Version None)
Quarter: 2010Q3

REPORT INFORMATION
  Report Type: 
  Country: None (occurrence: None)
  Receive Date: 20100922
  Receipt Date: 20100916
  Transmission Date: 20110219
  Serious: Yes (Life-Threatening, Hospitalization, Other)
  Sender: FDA-Public Use
  Company Number: US-ELI_LILLY_AND_COMPANY-US201007004211

PATIENT
  Sex: Male
  Weight: 82.993 kg

DRUGS (14)
  1. BYETTA [Suspect]
     Indication: TYPE 2 DIABETES MELLITUS
     Dosage: 5 UG, 2/D
     Route: 058
     Dates: start: 20060101
  2. HUMALOG [Concomitant]
     Indication: TYPE 2 DIABETES MELLITUS
     Dosage: UNK, AS NEEDED
  3. PRANDIN [Concomitant]
     Indication: TYPE 2 DIABETES MELLITUS
     Dosage: 1 MG, EACH MORNING
  4. COREG CR [Concomitant]
     Dosage: 20 MG, DAILY (1/D)
  5. COZAAR [Concomitant]
     Dosage: 100 MG, DAILY (1/D)
  6. COUMADIN [Concomitant]
     Dosage: 7.5 MG, 4/W
  7. COUMADIN [Concomitant]
     Dosage: 5 MG, 3/W
  8. ZOLOFT [Concomitant]
     Indication: DEPRESSION
     Dosage: 50 MG, DAILY (1/D)
  9. VALIUM [Concomitant]
     Indication: MUSCLE SPASMS
     Dosage: 5 MG, AS NEEDED
  10. LORTAB [Concomitant]
     Indication: ARTHRALGIA
     Dosage: UNK, AS NEEDED
  11. MULTAQ [Concomitant]
     Dosage: 40 MG, 2/D
  12. POTASSIUM CHLORIDE [Concomitant]
     Dosage: 20 MEQ, DAILY (1/D)
  13. LASIX [Concomitant]
     Dosage: 40 MG, 2/D
  14. WARFARIN SODIUM [Concomitant]
     Indication: ATRIAL FIBRILLATION
     Dosage: 5 MG, UNK
     Dates: start: 20091201

REACTIONS (25)
  - AMNESIA [None]
  - ARRHYTHMIA [None]
  - ARTHRALGIA [None]
  - ATRIAL FIBRILLATION [None]
  - BLOOD CHOLESTEROL INCREASED [None]
  - BLOOD GLUCOSE DECREASED [None]
  - BLOOD GLUCOSE INCREASED [None]
  - BRADYCARDIA [None]
  - CARDIAC DISORDER [None]
  - CATARACT [None]
  - CORONARY ARTERY OCCLUSION [None]
  - DRUG HYPERSENSITIVITY [None]
  - DYSSTASIA [None]
  - FALL [None]
  - HYPOACUSIS [None]
  - JOINT INJURY [None]
  - JOINT SWELLING [None]
  - LOSS OF CONSCIOUSNESS [None]
  - MOBILITY DECREASED [None]
  - OFF LABEL USE [None]
  - PAIN [None]
  - PULSE ABSENT [None]
  - RESPIRATORY ARREST [None]
  - TACHYCARDIA [None]
  - VISUAL ACUITY REDUCED [None]
